FAERS Safety Report 22143646 (Version 1)
Quarter: 2023Q1

REPORT INFORMATION
  Report Type: Report from Study
  Country: CN (occurrence: CN)
  Receive Date: 20230327
  Receipt Date: 20230327
  Transmission Date: 20230417
  Serious: Yes (Hospitalization)
  Sender: FDA-Public Use
  Company Number: CN-BAYER-2023A034447

PATIENT
  Sex: Female

DRUGS (1)
  1. STIVARGA [Suspect]
     Active Substance: REGORAFENIB
     Indication: Colorectal cancer
     Dosage: 80 MG
     Route: 048
     Dates: start: 20230113, end: 2023

REACTIONS (2)
  - Oedema peripheral [Unknown]
  - Off label use [None]

NARRATIVE: CASE EVENT DATE: 20230101
